FAERS Safety Report 9605770 (Version 1)
Quarter: 2013Q4

REPORT INFORMATION
  Report Type: Spontaneous
  Country: US (occurrence: US)
  Receive Date: 20131008
  Receipt Date: 20131008
  Transmission Date: 20140711
  Serious: No
  Sender: FDA-Public Use
  Company Number: US-AMGEN-USASP2013045720

PATIENT
  Age: 75 Year
  Sex: Male

DRUGS (8)
  1. XGEVA [Suspect]
     Indication: PROSTATE CANCER
     Dosage: UNK
     Dates: start: 20130327
  2. XGEVA [Suspect]
     Dosage: UNK
     Dates: start: 20130524
  3. DIAZEPAM [Concomitant]
     Dosage: UNK
  4. LISINOPRIL [Concomitant]
     Dosage: UNK
  5. LUPRON [Concomitant]
     Dosage: UNK
  6. NEXIUM                             /01479302/ [Concomitant]
  7. CALCIUM [Concomitant]
     Dosage: UNK
  8. VITAMIN D                          /00107901/ [Concomitant]
     Dosage: UNK

REACTIONS (3)
  - Dizziness [Unknown]
  - Hypoaesthesia [Unknown]
  - Headache [Unknown]
